FAERS Safety Report 23204331 (Version 1)
Quarter: 2023Q4

REPORT INFORMATION
  Report Type: Spontaneous
  Country: US (occurrence: US)
  Receive Date: 20231120
  Receipt Date: 20231120
  Transmission Date: 20240110
  Serious: Yes (Other)
  Sender: FDA-Public Use
  Company Number: US-Korea IPSEN-2023-25886

PATIENT
  Age: 48 Year
  Sex: Male

DRUGS (5)
  1. LANREOTIDE ACETATE [Suspect]
     Active Substance: LANREOTIDE ACETATE
     Indication: Neuroendocrine tumour
     Dosage: MONTHLY
     Route: 065
  2. INSULIN NOS [Concomitant]
     Active Substance: INSULIN NOS
     Indication: Type 1 diabetes mellitus
  3. BASAL PLUS PRANDIAL INSULIN [Concomitant]
     Dosage: 0.6-0.7 UNIT/ KG OF INSULIN EACH DAY
  4. EVEROLIMUS [Concomitant]
     Active Substance: EVEROLIMUS
     Indication: Neuroendocrine tumour
  5. PEMBROLIZUMAB [Concomitant]
     Active Substance: PEMBROLIZUMAB
     Indication: Neuroendocrine tumour

REACTIONS (2)
  - Hypothyroidism [Unknown]
  - Hypoglycaemia [Unknown]
